FAERS Safety Report 9058634 (Version 1)
Quarter: 2013Q1

REPORT INFORMATION
  Report Type: Spontaneous
  Country: FR (occurrence: FR)
  Receive Date: 20130211
  Receipt Date: 20130211
  Transmission Date: 20140127
  Serious: Yes (Hospitalization, Other)
  Sender: FDA-Public Use
  Company Number: FR-SANOFI-AVENTIS-2013SA009191

PATIENT
  Age: 77 Year
  Sex: Male
  Weight: 77 kg

DRUGS (4)
  1. LOVENOX [Suspect]
     Indication: PROPHYLAXIS
     Dosage: DOSE:0.7
     Route: 065
     Dates: start: 2012, end: 201211
  2. SUNITINIB [Suspect]
     Indication: RENAL CANCER METASTATIC
     Route: 048
     Dates: start: 20121030, end: 201211
  3. SUNITINIB [Suspect]
     Indication: RENAL CANCER METASTATIC
     Route: 048
     Dates: start: 201212, end: 201212
  4. HEPARIN-FRACTION [Concomitant]

REACTIONS (8)
  - Mallory-Weiss syndrome [Recovered/Resolved]
  - Incorrect dose administered [Recovered/Resolved]
  - Vomiting [Recovered/Resolved]
  - Haematemesis [Recovered/Resolved]
  - Abdominal pain [Recovered/Resolved]
  - Diarrhoea [Recovered/Resolved]
  - Thrombocytopenia [Not Recovered/Not Resolved]
  - Drug prescribing error [Unknown]
